FAERS Safety Report 21583909 (Version 1)
Quarter: 2022Q4

REPORT INFORMATION
  Report Type: Spontaneous
  Country: IT (occurrence: IT)
  Receive Date: 20221111
  Receipt Date: 20221111
  Transmission Date: 20230113
  Serious: Yes (Death, Hospitalization, Other)
  Sender: FDA-Public Use
  Company Number: IT-AMGEN-ITASP2022189660

PATIENT

DRUGS (2)
  1. PROLIA [Suspect]
     Active Substance: DENOSUMAB
     Indication: Osteoporosis
     Dosage: UNK
     Route: 065
  2. CALCIUM\VITAMIN D [Concomitant]
     Active Substance: CALCIUM\VITAMIN D
     Indication: Product used for unknown indication

REACTIONS (14)
  - Death [Fatal]
  - Hip fracture [Unknown]
  - Femur fracture [Unknown]
  - Spinal fracture [Unknown]
  - Cerebrovascular accident [Unknown]
  - Pneumonia [Unknown]
  - Cardiac disorder [Unknown]
  - Orthopaedic procedure [Unknown]
  - Fracture [Unknown]
  - Ankle fracture [Unknown]
  - Wrist fracture [Unknown]
  - Humerus fracture [Unknown]
  - Fall [Unknown]
  - Anaemia [Unknown]
